FAERS Safety Report 26127762 (Version 1)
Quarter: 2025Q4

REPORT INFORMATION
  Report Type: Spontaneous
  Country: US (occurrence: US)
  Receive Date: 20251206
  Receipt Date: 20251206
  Transmission Date: 20260117
  Serious: No
  Sender: BOEHRINGER INGELHEIM
  Company Number: US-Komodo Health-a23aa00000CTFeIAAX

PATIENT
  Sex: Male

DRUGS (2)
  1. OFEV [Suspect]
     Active Substance: NINTEDANIB
     Indication: Product used for unknown indication
  2. OFEV [Suspect]
     Active Substance: NINTEDANIB
     Dosage: THEY ATTEMPTED TO DECREASE THE DAILY DOSE(100MG TWICE A DAY, 50MG ONCE A DAY AND 100MG ONCE A DAY), HOWEVER THE DIARRHEA CONTINUED.

REACTIONS (2)
  - Diarrhoea [Not Recovered/Not Resolved]
  - Forced vital capacity decreased [Unknown]
